FAERS Safety Report 6625376-6 (Version None)
Quarter: 2010Q1

REPORT INFORMATION
  Report Type: 
  Country: None (occurrence: None)
  Receive Date: 20100310
  Receipt Date: 20090821
  Transmission Date: 20100710
  Serious: No
  Sender: FDA-Public Use
  Company Number: US-BIOGENIDEC-2009BI026739

PATIENT
  Sex: Male

DRUGS (3)
  1. AVONEX [Suspect]
     Indication: MULTIPLE SCLEROSIS
     Route: 030
     Dates: start: 19990101, end: 20020901
  2. AVONEX [Suspect]
     Route: 030
     Dates: start: 20030901, end: 20040501
  3. AVONEX [Suspect]
     Route: 030
     Dates: start: 20040701, end: 20090501

REACTIONS (4)
  - DYSPHEMIA [None]
  - HYPOAESTHESIA [None]
  - INFLUENZA LIKE ILLNESS [None]
  - SOMNOLENCE [None]
